FAERS Safety Report 6058086-7 (Version None)
Quarter: 2009Q1

REPORT INFORMATION
  Report Type: 
  Country: None (occurrence: None)
  Receive Date: 20090128
  Receipt Date: 20090121
  Transmission Date: 20090719
  Serious: Yes (Hospitalization)
  Sender: FDA-Public Use
  Company Number: US025238

PATIENT
  Age: 55 Year
  Sex: Male
  Weight: 96 kg

DRUGS (9)
  1. BENDAMUSTINE [Suspect]
     Indication: LYMPHOMA
     Dosage: 194 MG DAYS 1 AND 2 INTRAVENOUS
     Route: 042
     Dates: start: 20081201, end: 20081202
  2. VELCADE [Suspect]
     Indication: LYMPHOMA
     Dosage: 3.5 MG DAYS 1, 8, 15 AND 22 INTRAVENOUS
     Route: 042
     Dates: start: 20081201, end: 20081215
  3. RITUXIMAB [Concomitant]
  4. CYMBALTA [Concomitant]
  5. LYRICA [Concomitant]
  6. MORPHINE [Concomitant]
  7. MORPHINE [Concomitant]
  8. ZOLPIDEM [Concomitant]
  9. BACTRIM DS [Concomitant]

REACTIONS (12)
  - ALANINE AMINOTRANSFERASE INCREASED [None]
  - ANAEMIA [None]
  - DUODENAL ULCER [None]
  - EROSIVE DUODENITIS [None]
  - GASTRITIS EROSIVE [None]
  - HYPOTENSION [None]
  - LOSS OF CONSCIOUSNESS [None]
  - NEUTROPHIL COUNT DECREASED [None]
  - SYNCOPE [None]
  - THROMBOCYTOPENIA [None]
  - ULCER HAEMORRHAGE [None]
  - UPPER GASTROINTESTINAL HAEMORRHAGE [None]
